FAERS Safety Report 4986126-2 (Version None)
Quarter: 2006Q2

REPORT INFORMATION
  Report Type: 
  Country: None (occurrence: None)
  Receive Date: 20060428
  Receipt Date: 20060329
  Transmission Date: 20061013
  Serious: Yes (Other)
  Sender: FDA-Public Use
  Company Number: 2006UW05550

PATIENT
  Age: 85 Year
  Sex: Female
  Weight: 70.3 kg

DRUGS (3)
  1. TOPROL-XL [Suspect]
     Indication: HYPERTENSION
     Route: 048
     Dates: start: 20040101
  2. BENICAR [Concomitant]
  3. WATER PILL [Concomitant]

REACTIONS (7)
  - CATARACT [None]
  - CATARACT OPERATION COMPLICATION [None]
  - EXTRASYSTOLES [None]
  - HEART RATE IRREGULAR [None]
  - NEOPLASM MALIGNANT [None]
  - PALPITATIONS [None]
  - SLEEP DISORDER [None]
